FAERS Safety Report 4597256-1 (Version None)
Quarter: 2005Q1

REPORT INFORMATION
  Report Type: 
  Country: None (occurrence: None)
  Receive Date: 20050301
  Receipt Date: 20050216
  Transmission Date: 20050727
  Serious: Yes (Other)
  Sender: FDA-Public Use
  Company Number: 2005027300

PATIENT
  Age: 39 Year
  Sex: Female

DRUGS (1)
  1. ATARAX [Suspect]
     Indication: URTICARIA
     Dosage: 10 MG (10 MG, 1 IN 1 D), ORAL
     Route: 048
     Dates: start: 20050204, end: 20050205

REACTIONS (1)
  - ANAPHYLACTOID REACTION [None]
